FAERS Safety Report 6913169-1 (Version None)
Quarter: 2010Q3

REPORT INFORMATION
  Report Type: 
  Country: None (occurrence: None)
  Receive Date: 20100806
  Receipt Date: 20091118
  Transmission Date: 20110219
  Serious: No
  Sender: FDA-Public Use
  Company Number: US-PFIZER INC-2009210816

PATIENT
  Sex: Female

DRUGS (3)
  1. DILANTIN-125 [Suspect]
     Dosage: UNK
     Dates: start: 19950101
  2. DILANTIN [Suspect]
     Dosage: UNK
  3. DILANTIN [Suspect]
     Dosage: UNK

REACTIONS (7)
  - AGGRESSION [None]
  - BLISTER [None]
  - DYSPNOEA [None]
  - PALPITATIONS [None]
  - PRURITUS GENERALISED [None]
  - VIOLENCE-RELATED SYMPTOM [None]
  - VISUAL IMPAIRMENT [None]
